FAERS Safety Report 22237053 (Version 1)
Quarter: 2023Q2

REPORT INFORMATION
  Report Type: Spontaneous
  Country: US (occurrence: None)
  Receive Date: 20230421
  Receipt Date: 20230421
  Transmission Date: 20230722
  Serious: No
  Sender: FDA-Public Use
  Company Number: US-ROCHE-3215581

PATIENT
  Sex: Female

DRUGS (3)
  1. ESBRIET [Suspect]
     Active Substance: PIRFENIDONE
     Indication: Pulmonary fibrosis
     Dosage: ONGOING: YES?1 CAPSULE FOR 7 DAYS
     Route: 048
     Dates: start: 20221013
  2. ESBRIET [Suspect]
     Active Substance: PIRFENIDONE
     Dosage: 2 CAPSULES FOR 7 DAYS
     Route: 048
     Dates: start: 20221013
  3. ESBRIET [Suspect]
     Active Substance: PIRFENIDONE
     Dosage: 3 CAPSULES FOR 7 DAYS
     Route: 048
     Dates: start: 20221013

REACTIONS (2)
  - Headache [Unknown]
  - Dyspepsia [Unknown]
